FAERS Safety Report 4870390-4 (Version None)
Quarter: 2006Q1

REPORT INFORMATION
  Report Type: 
  Country: None (occurrence: None)
  Receive Date: 20060103
  Receipt Date: 20051222
  Transmission Date: 20060701
  Serious: Yes (Other)
  Sender: FDA-Public Use
  Company Number: US-JNJFOC-20051205687

PATIENT
  Sex: Female

DRUGS (6)
  1. INFLIXIMAB [Suspect]
     Indication: RHEUMATOID ARTHRITIS
     Route: 042
  2. PLAQUENIL [Concomitant]
  3. CALCIUM WITH VITAMIN D [Concomitant]
  4. CALCIUM WITH VITAMIN D [Concomitant]
  5. CALCIUM WITH VITAMIN D [Concomitant]
  6. MOTRIN [Concomitant]

REACTIONS (1)
  - MALIGNANT MELANOMA [None]
